FAERS Safety Report 24969973 (Version 1)
Quarter: 2025Q1

REPORT INFORMATION
  Report Type: Spontaneous
  Country: GB (occurrence: GB)
  Receive Date: 20250214
  Receipt Date: 20250214
  Transmission Date: 20250408
  Serious: Yes (Other)
  Sender: BAYER HEALTHCARE PHARMACEUTICALS INC.
  Company Number: GB-BAYER-2025A018466

PATIENT
  Sex: Male

DRUGS (7)
  1. XOFIGO [Suspect]
     Active Substance: RADIUM RA-223 DICHLORIDE
  2. XOFIGO [Suspect]
     Active Substance: RADIUM RA-223 DICHLORIDE
  3. XOFIGO [Suspect]
     Active Substance: RADIUM RA-223 DICHLORIDE
  4. XOFIGO [Suspect]
     Active Substance: RADIUM RA-223 DICHLORIDE
  5. XOFIGO [Suspect]
     Active Substance: RADIUM RA-223 DICHLORIDE
  6. XOFIGO [Suspect]
     Active Substance: RADIUM RA-223 DICHLORIDE
     Dates: end: 202305
  7. CABAZITAXEL [Concomitant]
     Active Substance: CABAZITAXEL
     Dates: end: 202405

REACTIONS (1)
  - Metastases to bone [None]
